FAERS Safety Report 8518916-3 (Version None)
Quarter: 2012Q3

REPORT INFORMATION
  Report Type: 
  Country: None (occurrence: None)
  Receive Date: 20120718
  Receipt Date: 20120711
  Transmission Date: 20120928
  Serious: Yes (Hospitalization)
  Sender: FDA-Public Use
  Company Number: US-GLAXOSMITHKLINE-A0973897A

PATIENT
  Age: 48 Year
  Sex: Female

DRUGS (2)
  1. FLOLAN [Suspect]
     Indication: PULMONARY HYPERTENSION
     Dosage: 42NGKM SEE DOSAGE TEXT
     Route: 042
     Dates: start: 20120320
  2. REVATIO [Concomitant]

REACTIONS (5)
  - CONFUSIONAL STATE [None]
  - RENAL FAILURE ACUTE [None]
  - FLUID OVERLOAD [None]
  - RENAL FAILURE CHRONIC [None]
  - SOMNOLENCE [None]
